FAERS Safety Report 18954934 (Version 2)
Quarter: 2021Q1

REPORT INFORMATION
  Report Type: Spontaneous
  Country: JP (occurrence: JP)
  Receive Date: 20210301
  Receipt Date: 20210318
  Transmission Date: 20210420
  Serious: Yes (Hospitalization)
  Sender: FDA-Public Use
  Company Number: JP-DSJP-DSJ-2021-103775

PATIENT
  Age: 71 Year
  Sex: Male
  Weight: 65 kg

DRUGS (4)
  1. AZILVA [Concomitant]
     Active Substance: AZILSARTAN KAMEDOXOMIL
     Dosage: UNK UNK, QD
     Route: 048
     Dates: start: 20200721
  2. CILNIDIPINE [Concomitant]
     Active Substance: CILNIDIPINE
     Dosage: UNK UNK, QD
     Route: 048
     Dates: start: 20200929
  3. ENHERTU [Suspect]
     Active Substance: FAM-TRASTUZUMAB DERUXTECAN-NXKI
     Indication: HER2 POSITIVE GASTRIC CANCER
     Dosage: 400 MG, ONCE EVERY 3 WK
     Route: 041
     Dates: start: 20210126
  4. ENHERTU [Suspect]
     Active Substance: FAM-TRASTUZUMAB DERUXTECAN-NXKI
     Dosage: 335 MG, ONCE EVERY 3 WK
     Route: 041
     Dates: start: 20210216

REACTIONS (3)
  - Decreased appetite [Recovered/Resolved]
  - Decreased appetite [Recovering/Resolving]
  - Weight decreased [Recovering/Resolving]

NARRATIVE: CASE EVENT DATE: 20210202
